FAERS Safety Report 5369599-5 (Version None)
Quarter: 2007Q2

REPORT INFORMATION
  Report Type: 
  Country: None (occurrence: None)
  Receive Date: 20070621
  Receipt Date: 20070611
  Transmission Date: 20071010
  Serious: Yes (Hospitalization, Other)
  Sender: FDA-Public Use
  Company Number: 23481K07USA

PATIENT
  Age: 29 Year
  Sex: Female
  Weight: 108.8633 kg

DRUGS (6)
  1. REBIF [Suspect]
     Indication: MULTIPLE SCLEROSIS
     Dosage: 44 MCG, 3 IN 1 WEEKS, SUBCUTANEOUS
     Route: 058
     Dates: start: 20060920
  2. TYLENOL (COTYLENOL) [Concomitant]
  3. LEVOTHYROXINE (LEVOTHYROXINE/000680011/) [Concomitant]
  4. METFORMIN (METFORMIN) [Concomitant]
  5. GABAPENTIN [Concomitant]
  6. LISINOPRIL [Concomitant]

REACTIONS (4)
  - ANAEMIA [None]
  - DYSPNOEA [None]
  - OEDEMA PERIPHERAL [None]
  - THALASSAEMIA TRAIT [None]
